FAERS Safety Report 24975905 (Version 1)
Quarter: 2025Q1

REPORT INFORMATION
  Report Type: Spontaneous
  Country: NL (occurrence: NL)
  Receive Date: 20250217
  Receipt Date: 20250217
  Transmission Date: 20250409
  Serious: Yes (Other)
  Sender: UCB
  Company Number: None

PATIENT
  Age: 37 Year
  Sex: Female
  Weight: 75 kg

DRUGS (2)
  1. KEPPRA [Interacting]
     Active Substance: LEVETIRACETAM
     Indication: Epilepsy
     Route: 048
  2. GINKGO [Interacting]
     Active Substance: GINKGO
     Indication: Chillblains
     Dosage: 1 X 1 PER DAY
     Dates: start: 20241118, end: 20250115

REACTIONS (2)
  - Epilepsy [Recovering/Resolving]
  - Herbal interaction [Recovering/Resolving]

NARRATIVE: CASE EVENT DATE: 20241212
